FAERS Safety Report 7179197-9 (Version None)
Quarter: 2010Q4

REPORT INFORMATION
  Report Type: 
  Country: None (occurrence: None)
  Receive Date: 20101221
  Receipt Date: 20101213
  Transmission Date: 20110411
  Serious: Yes (Other)
  Sender: FDA-Public Use
  Company Number: US-SANOFI-AVENTIS-2010SA070108

PATIENT
  Sex: Female
  Weight: 59.42 kg

DRUGS (6)
  1. MULTAQ [Suspect]
     Indication: ATRIAL FIBRILLATION
     Route: 048
     Dates: start: 20100401, end: 20101010
  2. MULTAQ [Suspect]
     Route: 048
     Dates: start: 20101010, end: 20101011
  3. MULTAQ [Suspect]
     Route: 048
     Dates: start: 20101017
  4. COUMADIN [Concomitant]
     Indication: ATRIAL FIBRILLATION
  5. LUMIGAN [Concomitant]
     Indication: GLAUCOMA
  6. VITAMINS [Concomitant]

REACTIONS (13)
  - ABDOMINAL PAIN UPPER [None]
  - ALOPECIA [None]
  - ARTHRITIS [None]
  - ATRIAL FIBRILLATION [None]
  - DIARRHOEA [None]
  - DIZZINESS [None]
  - FEELING ABNORMAL [None]
  - INCORRECT DOSE ADMINISTERED [None]
  - NERVOUSNESS [None]
  - OEDEMA PERIPHERAL [None]
  - PAIN IN EXTREMITY [None]
  - POLLAKIURIA [None]
  - TACHYCARDIA [None]
